FAERS Safety Report 12661286 (Version 2)
Quarter: 2016Q3

REPORT INFORMATION
  Report Type: Spontaneous
  Country: US (occurrence: US)
  Receive Date: 20160817
  Receipt Date: 20160901
  Transmission Date: 20161109
  Serious: No
  Sender: FDA-Public Use
  Company Number: US-RELYPSA-RLY2016000856

PATIENT
  Age: 83 Year
  Sex: Female

DRUGS (22)
  1. VELTASSA [Suspect]
     Active Substance: PATIROMER
     Indication: HYPERKALAEMIA
     Dosage: 8.4 G, Q.D.
     Route: 048
     Dates: start: 20160513
  2. LIDODERM [Concomitant]
     Active Substance: LIDOCAINE
  3. METANX [Concomitant]
     Active Substance: LEVOMEFOLATE CALCIUM\METHYLCOBALAMIN\PYRIDOXAL PHOSPHATE ANHYDROUS
  4. ULORIC [Concomitant]
     Active Substance: FEBUXOSTAT
  5. DEMADEX [Concomitant]
     Active Substance: TORSEMIDE
  6. PROCRIT [Concomitant]
     Active Substance: ERYTHROPOIETIN
  7. NEXIUM [Concomitant]
     Active Substance: ESOMEPRAZOLE MAGNESIUM
  8. VELTASSA [Suspect]
     Active Substance: PATIROMER
     Indication: CHRONIC KIDNEY DISEASE
  9. AMLODIPINE BESYLATE. [Concomitant]
     Active Substance: AMLODIPINE BESYLATE
  10. COLCRYS [Concomitant]
     Active Substance: COLCHICINE
  11. LANOXIN [Concomitant]
     Active Substance: DIGOXIN
  12. VITAMIN D3 [Concomitant]
     Active Substance: CHOLECALCIFEROL
  13. FOLIC ACID. [Concomitant]
     Active Substance: FOLIC ACID
  14. XANAX [Concomitant]
     Active Substance: ALPRAZOLAM
  15. AVAPRO [Concomitant]
     Active Substance: IRBESARTAN
  16. VITAMIN E                          /00110501/ [Concomitant]
     Active Substance: TOCOPHEROL
  17. TRAMADOL HCL [Concomitant]
     Active Substance: TRAMADOL HYDROCHLORIDE
  18. COREG [Concomitant]
     Active Substance: CARVEDILOL
  19. TRAZODONE HYDROCHLORIDE. [Concomitant]
     Active Substance: TRAZODONE HYDROCHLORIDE
  20. PLAVIX [Concomitant]
     Active Substance: CLOPIDOGREL BISULFATE
  21. XALATAN [Concomitant]
     Active Substance: LATANOPROST
  22. FEOSOL BIFERA [Concomitant]

REACTIONS (1)
  - Constipation [Unknown]

NARRATIVE: CASE EVENT DATE: 20160513
